FAERS Safety Report 10157092 (Version 2)
Quarter: 2014Q2

REPORT INFORMATION
  Report Type: Spontaneous
  Country: US (occurrence: US)
  Receive Date: 20140507
  Receipt Date: 20140528
  Transmission Date: 20141212
  Serious: Yes (Death, Life-Threatening, Hospitalization, Other)
  Sender: FDA-Public Use
  Company Number: US-009507513-1405USA002873

PATIENT
  Sex: Female

DRUGS (4)
  1. JANUVIA [Suspect]
     Indication: TYPE 2 DIABETES MELLITUS
     Dosage: 100 MG, QD
     Route: 048
     Dates: start: 20061212, end: 20081202
  2. JANUVIA [Suspect]
     Dosage: 50 MG, QD
     Route: 048
     Dates: start: 20090213
  3. BYETTA [Suspect]
     Indication: TYPE 2 DIABETES MELLITUS
     Dosage: 5 MICROGRAM, BID
     Dates: start: 20050906, end: 20051006
  4. BYETTA [Suspect]
     Dosage: 10 MICROGRAM, BID
     Dates: start: 20060213, end: 20060514

REACTIONS (11)
  - Pancreatic carcinoma [Fatal]
  - Cholecystectomy [Unknown]
  - Bile duct obstruction [Unknown]
  - Hepatitis [Unknown]
  - Nephrolithiasis [Unknown]
  - Gastrointestinal disorder [Unknown]
  - Hypertension [Unknown]
  - Hypothyroidism [Unknown]
  - Hyperlipidaemia [Unknown]
  - Hernia [Unknown]
  - Renal cyst [Unknown]
